FAERS Safety Report 8089216-3 (Version None)
Quarter: 2012Q1

REPORT INFORMATION
  Report Type: 
  Country: None (occurrence: None)
  Receive Date: 20120128
  Receipt Date: 20110706
  Transmission Date: 20120608
  Serious: Yes (Other)
  Sender: FDA-Public Use
  Company Number: US-ABBOTT-11P-163-0834750-00

PATIENT
  Sex: Male
  Weight: 81.72 kg

DRUGS (3)
  1. DARVOCET [Concomitant]
     Indication: PAIN
  2. HUMIRA [Suspect]
     Indication: COLITIS ULCERATIVE
     Dates: start: 20081001, end: 20110527
  3. HUMIRA [Suspect]
     Indication: CROHN'S DISEASE
     Dates: start: 20110615

REACTIONS (4)
  - DYSPNOEA [None]
  - BRONCHOPNEUMONIA [None]
  - FATIGUE [None]
  - INCREASED TENDENCY TO BRUISE [None]
